FAERS Safety Report 20210832 (Version 2)
Quarter: 2022Q3

REPORT INFORMATION
  Report Type: Spontaneous
  Country: JP (occurrence: JP)
  Receive Date: 20211221
  Receipt Date: 20220930
  Transmission Date: 20221027
  Serious: Yes (Disabling, Other)
  Sender: FDA-Public Use
  Company Number: JP-NOVARTISPH-NVSJ2020JP007306

PATIENT
  Age: 71 Year
  Sex: Male

DRUGS (5)
  1. BEOVU [Suspect]
     Active Substance: BROLUCIZUMAB-DBLL
     Indication: Age-related macular degeneration
     Dosage: 6 MG
     Route: 031
     Dates: start: 20200623, end: 20200623
  2. LUCENTIS [Suspect]
     Active Substance: RANIBIZUMAB
     Indication: Age-related macular degeneration
     Dosage: 0.05 ML
     Route: 031
     Dates: start: 20200827, end: 20200827
  3. AFLIBERCEPT [Concomitant]
     Active Substance: AFLIBERCEPT
     Indication: Neovascular age-related macular degeneration
     Dosage: UNK
     Route: 031
  4. AFLIBERCEPT [Concomitant]
     Active Substance: AFLIBERCEPT
     Dosage: UNK
     Route: 031
  5. AFLIBERCEPT [Concomitant]
     Active Substance: AFLIBERCEPT
     Dosage: UNK
     Route: 031

REACTIONS (8)
  - Retinal pigment epithelial tear [Recovered/Resolved with Sequelae]
  - Visual acuity reduced transiently [Recovering/Resolving]
  - Serous retinal detachment [Unknown]
  - Retinal haemorrhage [Unknown]
  - Fundoscopy abnormal [Not Recovered/Not Resolved]
  - Choroidal neovascularisation [Recovering/Resolving]
  - Concomitant disease aggravated [Recovering/Resolving]
  - Eye inflammation [Unknown]

NARRATIVE: CASE EVENT DATE: 20200727
